FAERS Safety Report 6212680-9 (Version None)
Quarter: 2009Q2

REPORT INFORMATION
  Report Type: 
  Country: None (occurrence: None)
  Receive Date: 20090603
  Receipt Date: 20090527
  Transmission Date: 20091009
  Serious: Yes (Other)
  Sender: FDA-Public Use
  Company Number: FR-ROCHE-624307

PATIENT
  Sex: Female
  Weight: 50 kg

DRUGS (6)
  1. BONIVA [Suspect]
     Indication: OSTEOPOROSIS
     Route: 048
     Dates: start: 20080201
  2. OROCAL D3 [Concomitant]
     Indication: OSTEOPOROSIS
  3. POLYKARAYA [Concomitant]
  4. TRIMEBUTINE [Concomitant]
  5. NULYTELY [Concomitant]
  6. CRANBERRY [Concomitant]
     Dosage: DRUG NAME: CANNEBERGE

REACTIONS (2)
  - GLOSSITIS [None]
  - TONGUE DISORDER [None]
